FAERS Safety Report 17116735 (Version 1)
Quarter: 2019Q4

REPORT INFORMATION
  Report Type: Spontaneous
  Country: GB (occurrence: US)
  Receive Date: 20191205
  Receipt Date: 20191205
  Transmission Date: 20200122
  Serious: No
  Sender: FDA-Public Use
  Company Number: US-ASTELLAS-2019US036779

PATIENT
  Sex: Female

DRUGS (1)
  1. TARCEVA [Suspect]
     Active Substance: ERLOTINIB HYDROCHLORIDE
     Indication: LUNG NEOPLASM MALIGNANT
     Route: 048
     Dates: start: 20190601

REACTIONS (12)
  - Alopecia [Not Recovered/Not Resolved]
  - Pain in extremity [Unknown]
  - Aphthous ulcer [Recovered/Resolved]
  - Dry skin [Not Recovered/Not Resolved]
  - Skin laceration [Recovering/Resolving]
  - Nasal dryness [Recovering/Resolving]
  - Epistaxis [Unknown]
  - Diarrhoea [Unknown]
  - Drug ineffective [Unknown]
  - Rash [Not Recovered/Not Resolved]
  - Trichorrhexis [Not Recovered/Not Resolved]
  - Hair texture abnormal [Not Recovered/Not Resolved]

NARRATIVE: CASE EVENT DATE: 201906
